FAERS Safety Report 6047996-2 (Version None)
Quarter: 2009Q1

REPORT INFORMATION
  Report Type: 
  Country: None (occurrence: None)
  Receive Date: 20090123
  Receipt Date: 20090120
  Transmission Date: 20090719
  Serious: Yes (Death)
  Sender: FDA-Public Use
  Company Number: PHBS2009FR00576

PATIENT
  Age: 21 Year
  Sex: Female

DRUGS (4)
  1. IMATINIB MESYLATE [Suspect]
     Indication: CHRONIC MYELOID LEUKAEMIA
     Dosage: 400 MG/DAY
     Route: 065
     Dates: start: 20041001
  2. IMATINIB MESYLATE [Suspect]
     Dosage: 600 MG/DAY
     Route: 065
  3. NILOTINIB [Suspect]
     Indication: CHRONIC MYELOID LEUKAEMIA
  4. DASATINIB [Suspect]
     Indication: CHRONIC MYELOID LEUKAEMIA

REACTIONS (3)
  - BLAST CRISIS IN MYELOGENOUS LEUKAEMIA [None]
  - CHROMOSOME ANALYSIS ABNORMAL [None]
  - DRUG INEFFECTIVE [None]
